FAERS Safety Report 21669968 (Version 1)
Quarter: 2022Q4

REPORT INFORMATION
  Report Type: Spontaneous
  Country: BE (occurrence: BE)
  Receive Date: 20221201
  Receipt Date: 20221201
  Transmission Date: 20230113
  Serious: Yes (Death)
  Sender: FDA-Public Use
  Company Number: BE-CELLTRION HEALTHCARE HUNGARY KFT-2022BE015060

PATIENT
  Age: 64 Year
  Sex: Male

DRUGS (10)
  1. METHOTREXATE [Suspect]
     Active Substance: METHOTREXATE
     Indication: Triple hit lymphoma
     Dosage: UNK
     Route: 065
  2. CEFTRIAXONE [Suspect]
     Active Substance: CEFTRIAXONE
     Indication: Borrelia infection
     Dosage: 2 GRAM, QD
     Route: 065
  3. RITUXIMAB [Suspect]
     Active Substance: RITUXIMAB
     Indication: Triple hit lymphoma
     Dosage: UNK
     Route: 065
  4. CYTARABINE [Suspect]
     Active Substance: CYTARABINE
     Indication: Triple hit lymphoma
     Dosage: UNK
     Route: 065
  5. CYCLOPHOSPHAMIDE [Concomitant]
     Active Substance: CYCLOPHOSPHAMIDE
     Indication: Triple hit lymphoma
     Dosage: UNK
     Route: 065
  6. DOXORUBICIN HYDROCHLORIDE [Concomitant]
     Active Substance: DOXORUBICIN HYDROCHLORIDE
     Indication: Triple hit lymphoma
     Dosage: UNK
     Route: 065
  7. PREDNISONE [Concomitant]
     Active Substance: PREDNISONE
     Indication: Triple hit lymphoma
     Dosage: UNK
     Route: 065
  8. VINCRISTINE SULFATE [Concomitant]
     Active Substance: VINCRISTINE SULFATE
     Indication: Triple hit lymphoma
     Dosage: UNK
     Route: 065
  9. ETOPOSIDE PHOSPHATE [Concomitant]
     Active Substance: ETOPOSIDE PHOSPHATE
     Indication: Triple hit lymphoma
     Dosage: UNK
     Route: 065
  10. METHOTREXATE [Concomitant]
     Active Substance: METHOTREXATE
     Indication: Triple hit lymphoma
     Dosage: UNK UNK, QW
     Route: 065

REACTIONS (5)
  - Death [Fatal]
  - Drug ineffective [Unknown]
  - Disease progression [Unknown]
  - Diplopia [Unknown]
  - Monoparesis [Unknown]
